FAERS Safety Report 20798282 (Version 5)
Quarter: 2024Q4

REPORT INFORMATION
  Report Type: Spontaneous
  Country: US (occurrence: US)
  Receive Date: 20220507
  Receipt Date: 20241011
  Transmission Date: 20250115
  Serious: Yes (Other)
  Sender: SANOFI AVENTIS
  Company Number: US-SA-2022SA156495

PATIENT
  Age: 33 Year
  Sex: Male

DRUGS (4)
  1. ELOCTATE [Suspect]
     Active Substance: EFMOROCTOCOG ALFA
     Dosage: 4500 U, PRN
     Route: 042
  2. ELOCTATE [Suspect]
     Active Substance: EFMOROCTOCOG ALFA
     Dosage: 4500 U, PRN
     Route: 042
  3. ELOCTATE [Suspect]
     Active Substance: EFMOROCTOCOG ALFA
     Dosage: 4715 U
     Route: 065
  4. ELOCTATE [Suspect]
     Active Substance: EFMOROCTOCOG ALFA
     Dosage: 4715 U
     Route: 065

REACTIONS (5)
  - Spontaneous haemorrhage [Unknown]
  - Epistaxis [Unknown]
  - Blood urine present [Recovered/Resolved]
  - Limb injury [Unknown]
  - Product dose omission issue [Unknown]

NARRATIVE: CASE EVENT DATE: 20220426
